FAERS Safety Report 10162307 (Version 1)
Quarter: 2014Q2

REPORT INFORMATION
  Report Type: Spontaneous
  Country: TR (occurrence: TR)
  Receive Date: 20140509
  Receipt Date: 20140509
  Transmission Date: 20141212
  Serious: Yes (Hospitalization)
  Sender: FDA-Public Use
  Company Number: TR-NOVOPROD-409117

PATIENT
  Age: 1 Week
  Sex: Male

DRUGS (4)
  1. NOVORAPID FLEXPEN [Suspect]
     Indication: GESTATIONAL DIABETES
     Dosage: 12 U, QD
     Route: 064
     Dates: start: 20140123
  2. NOVORAPID FLEXPEN [Suspect]
     Dosage: 18 U, QD
     Route: 063
  3. INSULATARD HM PENFILL [Suspect]
     Indication: GESTATIONAL DIABETES
     Dosage: 6 U, QD
     Route: 064
     Dates: start: 20140123
  4. INSULATARD HM PENFILL [Suspect]
     Dosage: 6 U, QD
     Route: 063

REACTIONS (2)
  - Jaundice neonatal [Recovered/Resolved]
  - Foetal exposure during pregnancy [Recovered/Resolved]
